FAERS Safety Report 9364474 (Version 1)
Quarter: 2013Q2

REPORT INFORMATION
  Report Type: Spontaneous
  Country: FR (occurrence: FR)
  Receive Date: 20130624
  Receipt Date: 20130624
  Transmission Date: 20140414
  Serious: Yes (Other)
  Sender: FDA-Public Use
  Company Number: FR-PFIZER INC-2013184703

PATIENT
  Age: 70 Year
  Sex: Male

DRUGS (1)
  1. EFFEXOR LP [Suspect]
     Dosage: 37.5 MG, 1X/DAY
     Dates: start: 201305

REACTIONS (5)
  - Serotonin syndrome [Unknown]
  - Depressed level of consciousness [Unknown]
  - Vomiting [Unknown]
  - Myotonia [Unknown]
  - Weight decreased [Unknown]
